FAERS Safety Report 9143665 (Version 2)
Quarter: 2013Q2

REPORT INFORMATION
  Report Type: Spontaneous
  Country: IT (occurrence: IT)
  Receive Date: 20130306
  Receipt Date: 20130404
  Transmission Date: 20140414
  Serious: Yes (Hospitalization)
  Sender: FDA-Public Use
  Company Number: IT-ROCHE-1197895

PATIENT
  Age: 70 Year
  Sex: Female

DRUGS (13)
  1. ROCEFIN [Suspect]
     Indication: BRONCHITIS
     Route: 030
     Dates: start: 20130214, end: 20130218
  2. PARACODINA [Suspect]
     Indication: BRONCHITIS
     Route: 048
     Dates: start: 20130214, end: 20130218
  3. BREVA [Suspect]
     Indication: BRONCHITIS
     Route: 055
     Dates: start: 20130214, end: 20130218
  4. CLENIL [Suspect]
     Indication: BRONCHITIS
     Route: 055
     Dates: start: 20130214, end: 20130218
  5. TACHIPIRINA [Suspect]
     Indication: BRONCHITIS
     Route: 048
     Dates: start: 20130214, end: 20130218
  6. COTAREG [Concomitant]
     Route: 065
  7. SEACOR [Concomitant]
  8. NOVORAPID [Concomitant]
  9. LANTUS [Concomitant]
  10. PANTECTA [Concomitant]
     Route: 065
  11. LASIX [Concomitant]
     Route: 065
  12. INDERAL [Concomitant]
     Route: 065
  13. TICLOPIDINE [Concomitant]
     Route: 065

REACTIONS (2)
  - Cutaneous vasculitis [Recovering/Resolving]
  - Vasculitis [Recovering/Resolving]
